FAERS Safety Report 15531334 (Version 3)
Quarter: 2019Q2

REPORT INFORMATION
  Report Type: Report from Study
  Country: US (occurrence: US)
  Receive Date: 20181019
  Receipt Date: 20190613
  Transmission Date: 20190711
  Serious: Yes (Other)
  Sender: FDA-Public Use
  Company Number: US-ASTELLAS-2018US044443

PATIENT
  Sex: Male

DRUGS (1)
  1. ENZALUTAMIDE [Suspect]
     Active Substance: ENZALUTAMIDE
     Indication: PROSTATE CANCER
     Route: 048
     Dates: start: 20180815

REACTIONS (9)
  - Back pain [Not Recovered/Not Resolved]
  - Secretion discharge [Unknown]
  - Haemorrhoids [Unknown]
  - Insomnia [Not Recovered/Not Resolved]
  - Diarrhoea [Not Recovered/Not Resolved]
  - Product dose omission [Recovered/Resolved]
  - Muscle spasms [Not Recovered/Not Resolved]
  - Pulmonary embolism [Recovered/Resolved]
  - Compression fracture [Unknown]
